FAERS Safety Report 9059275 (Version 1)
Quarter: 2013Q1

REPORT INFORMATION
  Report Type: Report from Study
  Country: GB (occurrence: GB)
  Receive Date: 20130211
  Receipt Date: 20130211
  Transmission Date: 20140127
  Serious: Yes (Other)
  Sender: FDA-Public Use
  Company Number: GB-ROCHE-1189315

PATIENT
  Age: 71 Year
  Sex: Female

DRUGS (3)
  1. RITUXIMAB [Suspect]
     Indication: ANTI-NEUTROPHIL CYTOPLASMIC ANTIBODY POSITIVE VASCULITIS
     Dosage: 2 DOSES
     Route: 065
  2. RITUXIMAB [Suspect]
     Indication: OFF LABEL USE
     Route: 065
  3. PREDNISOLONE [Concomitant]
     Indication: IMMUNOSUPPRESSION
     Route: 065

REACTIONS (1)
  - Malignant peritoneal neoplasm [Unknown]
